FAERS Safety Report 7102975-9 (Version None)
Quarter: 2010Q4

REPORT INFORMATION
  Report Type: 
  Country: None (occurrence: None)
  Receive Date: 20101115
  Receipt Date: 20101102
  Transmission Date: 20110411
  Serious: Yes (Hospitalization)
  Sender: FDA-Public Use
  Company Number: US-ELI_LILLY_AND_COMPANY-US201011001261

PATIENT
  Sex: Female

DRUGS (7)
  1. EVISTA [Suspect]
     Indication: PROPHYLAXIS
     Dosage: 60 MG, UNK
     Dates: start: 20000101, end: 20010101
  2. FISH OIL [Concomitant]
  3. VITAMIN D [Concomitant]
  4. VITAMIN B-12 [Concomitant]
  5. CALCIUM [Concomitant]
  6. MULTI-VITAMIN [Concomitant]
  7. ASPIRIN [Concomitant]

REACTIONS (1)
  - LUNG NEOPLASM MALIGNANT [None]
